FAERS Safety Report 9002164 (Version 1)
Quarter: 2013Q1

REPORT INFORMATION
  Report Type: Spontaneous
  Country: US (occurrence: US)
  Receive Date: 20130107
  Receipt Date: 20130107
  Transmission Date: 20140127
  Serious: Yes (Other)
  Sender: FDA-Public Use
  Company Number: US-PFIZER INC-2013005286

PATIENT
  Age: 80 Year
  Sex: Female
  Weight: 68.03 kg

DRUGS (5)
  1. LYRICA [Suspect]
     Indication: MUSCULAR WEAKNESS
     Dosage: 25 MG, DAILY
     Dates: start: 20121119, end: 20121125
  2. LYRICA [Suspect]
     Dosage: 25 MG, 2X/DAY
     Dates: start: 20121126, end: 201211
  3. LYRICA [Suspect]
     Dosage: 25 MG, DAILY
     Dates: start: 201211
  4. LEVEMIR [Concomitant]
     Indication: DIABETES MELLITUS
     Dosage: 18 UNITS IN THE MORNING AND 16 UNITS AT NIGHT
  5. NOVOLOG [Concomitant]
     Indication: DIABETES MELLITUS
     Dosage: UNK, DAILY

REACTIONS (4)
  - Dysstasia [Unknown]
  - Drug ineffective for unapproved indication [Unknown]
  - Off label use [Unknown]
  - Therapeutic response unexpected [Unknown]
